FAERS Safety Report 24378571 (Version 1)
Quarter: 2024Q3

REPORT INFORMATION
  Report Type: Spontaneous
  Country: US (occurrence: None)
  Receive Date: 20240927
  Receipt Date: 20240927
  Transmission Date: 20241017
  Serious: No
  Sender: Public
  Company Number: None

PATIENT
  Age: 78 Year
  Sex: Male
  Weight: 63 kg

DRUGS (1)
  1. SULFAMETHOXAZOLE AND TRIMETHOPRIM [Suspect]
     Active Substance: SULFAMETHOXAZOLE\TRIMETHOPRIM
     Dosage: FREQUENCY : TWICE A DAY;?
     Route: 048
     Dates: start: 20231129, end: 20231129

REACTIONS (4)
  - Pruritus [None]
  - Rash [None]
  - Tachypnoea [None]
  - Urticaria [None]

NARRATIVE: CASE EVENT DATE: 20231129
